FAERS Safety Report 9221889 (Version 1)
Quarter: 2013Q2

REPORT INFORMATION
  Report Type: Spontaneous
  Country: US (occurrence: None)
  Receive Date: 20130410
  Receipt Date: 20130410
  Transmission Date: 20140414
  Serious: Yes (Hospitalization)
  Sender: FDA-Public Use
  Company Number: None

PATIENT
  Age: 88 Year
  Sex: Female
  Weight: 75.6 kg

DRUGS (21)
  1. COUMADIN [Suspect]
     Indication: ATRIAL FIBRILLATION
     Dosage: 7.5MG  Q48HR ALTERNATIN  PO?CHRONIC
     Route: 048
  2. COUMADIN [Suspect]
     Indication: CARDIAC ASSISTANCE DEVICE USER
     Dosage: 7.5MG  Q48HR ALTERNATIN  PO?CHRONIC
     Route: 048
  3. COUMADIN [Suspect]
     Indication: ATRIAL FIBRILLATION
     Dosage: 5MG  Q48 HR ALTERNATIN  PO?CHRONIC
     Route: 048
  4. COUMADIN [Suspect]
     Indication: CARDIAC ASSISTANCE DEVICE USER
     Dosage: 5MG  Q48 HR ALTERNATIN  PO?CHRONIC
     Route: 048
  5. PROTONIX [Concomitant]
  6. TYLENOL [Concomitant]
  7. COMBIVENT [Concomitant]
  8. GAVISCON [Concomitant]
  9. VIT C [Concomitant]
  10. CA+D [Concomitant]
  11. VITAMIN B12 [Concomitant]
  12. DIGOXIN [Concomitant]
  13. DILTIAZEM CD [Concomitant]
  14. COLACE [Concomitant]
  15. IRON SULFATE [Concomitant]
  16. ADVAIR DISKUS [Concomitant]
  17. LASIX [Concomitant]
  18. LEVOTHYROXINE [Concomitant]
  19. LISINOPRIL [Concomitant]
  20. MAGNESIUM OXIDE [Concomitant]
  21. MVI [Concomitant]

REACTIONS (8)
  - Anaemia [None]
  - Gastric ulcer [None]
  - Melaena [None]
  - Asthenia [None]
  - Nausea [None]
  - Blood creatinine increased [None]
  - Arteriovenous malformation [None]
  - Gastrointestinal haemorrhage [None]
